FAERS Safety Report 6057389-X (Version None)
Quarter: 2009Q1

REPORT INFORMATION
  Report Type: 
  Country: None (occurrence: None)
  Receive Date: 20090129
  Receipt Date: 20090121
  Transmission Date: 20090719
  Serious: Yes (Death)
  Sender: FDA-Public Use
  Company Number: US-JNJFOC-20090105435

PATIENT
  Sex: Female
  Weight: 81.65 kg

DRUGS (8)
  1. FENTANYL CITRATE [Suspect]
     Indication: PAIN
     Route: 062
  2. TRAMADOL HCL [Suspect]
     Indication: DRUG USE FOR UNKNOWN INDICATION
  3. PROZAC [Suspect]
     Indication: ANTIDEPRESSANT THERAPY
  4. XANAX [Suspect]
     Indication: ANXIETY
  5. TRAZODONE HCL [Suspect]
     Indication: ANTIDEPRESSANT THERAPY
  6. LORTAB [Concomitant]
  7. CLONIDINE HCL [Concomitant]
  8. NEURONTIN [Concomitant]

REACTIONS (2)
  - DRUG TOXICITY [None]
  - PULMONARY ARTERY THROMBOSIS [None]
